FAERS Safety Report 8388243-6 (Version None)
Quarter: 2012Q2

REPORT INFORMATION
  Report Type: 
  Country: None (occurrence: None)
  Receive Date: 20120525
  Receipt Date: 20120524
  Transmission Date: 20120825
  Serious: Yes (Death, Life-Threatening, Hospitalization, Other)
  Sender: FDA-Public Use
  Company Number: JP-B.I. PHARMACEUTICALS,INC./RIDGEFIELD-2012-BP-09386NB

PATIENT
  Age: 72 Year
  Sex: Male
  Weight: 70 kg

DRUGS (8)
  1. PRADAXA [Suspect]
     Indication: ATRIAL FIBRILLATION
     Dosage: 220 MG
     Route: 048
     Dates: end: 20120420
  2. LOXOPROFEN [Suspect]
     Dosage: 60 MG
     Route: 048
  3. LANSOPRAZOLE [Suspect]
     Dosage: 15 MG
     Route: 048
  4. REBAMIPIDE [Concomitant]
     Route: 048
  5. FAMOTIDINE [Suspect]
     Dosage: 10 MG
     Route: 048
  6. NEUROTROPIN [Concomitant]
     Route: 048
  7. MECOBALAMIN [Concomitant]
     Route: 048
  8. ZOLPIDEM [Concomitant]
     Route: 048

REACTIONS (4)
  - SHOCK [None]
  - INTERSTITIAL LUNG DISEASE [None]
  - SEPSIS [None]
  - STAPHYLOCOCCAL INFECTION [None]
